FAERS Safety Report 23988149 (Version 1)
Quarter: 2024Q2

REPORT INFORMATION
  Report Type: Spontaneous
  Country: CA (occurrence: CA)
  Receive Date: 20240619
  Receipt Date: 20240619
  Transmission Date: 20240716
  Serious: Yes (Death, Life-Threatening, Hospitalization, Disabling, Other)
  Sender: FDA-Public Use
  Company Number: CA-HALEON-2168831

PATIENT
  Age: 44 Year
  Sex: Female

DRUGS (441)
  1. DICLOFENAC DIETHYLAMINE [Suspect]
     Active Substance: DICLOFENAC DIETHYLAMINE
     Indication: Product used for unknown indication
  2. CETIRIZINE HYDROCHLORIDE [Suspect]
     Active Substance: CETIRIZINE HYDROCHLORIDE
     Indication: Rheumatoid arthritis
  3. CETIRIZINE HYDROCHLORIDE [Suspect]
     Active Substance: CETIRIZINE HYDROCHLORIDE
     Route: 048
  4. CETIRIZINE HYDROCHLORIDE [Suspect]
     Active Substance: CETIRIZINE HYDROCHLORIDE
     Route: 048
  5. CETIRIZINE HYDROCHLORIDE [Suspect]
     Active Substance: CETIRIZINE HYDROCHLORIDE
     Route: 048
  6. CETIRIZINE HYDROCHLORIDE [Suspect]
     Active Substance: CETIRIZINE HYDROCHLORIDE
  7. CETIRIZINE HYDROCHLORIDE [Suspect]
     Active Substance: CETIRIZINE HYDROCHLORIDE
  8. CETIRIZINE HYDROCHLORIDE [Suspect]
     Active Substance: CETIRIZINE HYDROCHLORIDE
  9. CETIRIZINE HYDROCHLORIDE [Suspect]
     Active Substance: CETIRIZINE HYDROCHLORIDE
  10. CETIRIZINE HYDROCHLORIDE [Suspect]
     Active Substance: CETIRIZINE HYDROCHLORIDE
     Route: 048
  11. CETIRIZINE HYDROCHLORIDE [Suspect]
     Active Substance: CETIRIZINE HYDROCHLORIDE
  12. ALENDRONIC ACID [Suspect]
     Active Substance: ALENDRONIC ACID
     Indication: Rheumatoid arthritis
     Route: 048
  13. ALENDRONIC ACID [Suspect]
     Active Substance: ALENDRONIC ACID
     Route: 048
  14. ALENDRONIC ACID [Suspect]
     Active Substance: ALENDRONIC ACID
     Route: 065
  15. ALENDRONIC ACID [Suspect]
     Active Substance: ALENDRONIC ACID
     Route: 065
  16. ALENDRONIC ACID [Suspect]
     Active Substance: ALENDRONIC ACID
     Route: 065
  17. ALENDRONIC ACID [Suspect]
     Active Substance: ALENDRONIC ACID
     Route: 048
  18. MYCOPHENOLATE MOFETIL [Suspect]
     Active Substance: MYCOPHENOLATE MOFETIL
     Indication: Rheumatoid arthritis
     Route: 065
  19. HYDROCORTISONE [Suspect]
     Active Substance: HYDROCORTISONE\HYDROCORTISONE ACETATE
     Indication: Rheumatoid arthritis
     Route: 061
  20. HYDROCORTISONE [Suspect]
     Active Substance: HYDROCORTISONE\HYDROCORTISONE ACETATE
     Route: 065
  21. HYDROCORTISONE [Suspect]
     Active Substance: HYDROCORTISONE\HYDROCORTISONE ACETATE
     Route: 048
  22. HYDROCORTISONE [Suspect]
     Active Substance: HYDROCORTISONE\HYDROCORTISONE ACETATE
     Route: 003
  23. HYDROCORTISONE [Suspect]
     Active Substance: HYDROCORTISONE\HYDROCORTISONE ACETATE
     Route: 058
  24. HYDROCORTISONE [Suspect]
     Active Substance: HYDROCORTISONE\HYDROCORTISONE ACETATE
     Route: 048
  25. HYDROCORTISONE [Suspect]
     Active Substance: HYDROCORTISONE\HYDROCORTISONE ACETATE
     Route: 065
  26. DICLOFENAC POTASSIUM [Suspect]
     Active Substance: DICLOFENAC POTASSIUM
     Indication: Product used for unknown indication
     Route: 065
  27. DICLOFENAC POTASSIUM [Suspect]
     Active Substance: DICLOFENAC POTASSIUM
     Route: 058
  28. DICLOFENAC POTASSIUM [Suspect]
     Active Substance: DICLOFENAC POTASSIUM
     Route: 065
  29. DICLOFENAC POTASSIUM [Suspect]
     Active Substance: DICLOFENAC POTASSIUM
     Route: 048
  30. DICLOFENAC POTASSIUM [Suspect]
     Active Substance: DICLOFENAC POTASSIUM
     Dosage: OCULAR USE
     Route: 031
  31. DICLOFENAC POTASSIUM [Suspect]
     Active Substance: DICLOFENAC POTASSIUM
     Route: 058
  32. ADALIMUMAB [Suspect]
     Active Substance: ADALIMUMAB\ISOPROPYL ALCOHOL
     Indication: Psoriatic arthropathy
     Route: 048
  33. ADALIMUMAB [Suspect]
     Active Substance: ADALIMUMAB\ISOPROPYL ALCOHOL
     Route: 058
  34. ADALIMUMAB [Suspect]
     Active Substance: ADALIMUMAB\ISOPROPYL ALCOHOL
     Route: 058
  35. ADALIMUMAB [Suspect]
     Active Substance: ADALIMUMAB\ISOPROPYL ALCOHOL
     Route: 058
  36. DOXYCYCLINE HYCLATE [Suspect]
     Active Substance: DOXYCYCLINE HYCLATE
     Indication: Product used for unknown indication
     Route: 065
  37. FOLIC ACID [Suspect]
     Active Substance: FOLIC ACID
     Indication: Rheumatoid arthritis
     Route: 058
  38. FOLIC ACID [Suspect]
     Active Substance: FOLIC ACID
     Route: 048
  39. FOLIC ACID [Suspect]
     Active Substance: FOLIC ACID
     Route: 048
  40. FOLIC ACID [Suspect]
     Active Substance: FOLIC ACID
     Route: 058
  41. FOLIC ACID [Suspect]
     Active Substance: FOLIC ACID
     Route: 065
  42. FOLIC ACID [Suspect]
     Active Substance: FOLIC ACID
     Route: 065
  43. FOLIC ACID [Suspect]
     Active Substance: FOLIC ACID
     Route: 065
  44. FOLIC ACID [Suspect]
     Active Substance: FOLIC ACID
     Route: 048
  45. FOLIC ACID [Suspect]
     Active Substance: FOLIC ACID
     Route: 048
  46. FOLIC ACID [Suspect]
     Active Substance: FOLIC ACID
     Route: 058
  47. FOLIC ACID [Suspect]
     Active Substance: FOLIC ACID
     Route: 048
  48. FOLIC ACID [Suspect]
     Active Substance: FOLIC ACID
     Route: 048
  49. FOLIC ACID [Suspect]
     Active Substance: FOLIC ACID
     Route: 048
  50. FOLIC ACID [Suspect]
     Active Substance: FOLIC ACID
     Route: 048
  51. FOLIC ACID [Suspect]
     Active Substance: FOLIC ACID
     Route: 065
  52. FOLIC ACID [Suspect]
     Active Substance: FOLIC ACID
     Route: 065
  53. FOLIC ACID [Suspect]
     Active Substance: FOLIC ACID
     Route: 065
  54. FOLIC ACID [Suspect]
     Active Substance: FOLIC ACID
     Route: 065
  55. FOLIC ACID [Suspect]
     Active Substance: FOLIC ACID
     Route: 065
  56. HYDROXYCHLOROQUINE [Suspect]
     Active Substance: HYDROXYCHLOROQUINE
     Indication: Rheumatoid arthritis
     Route: 065
  57. HYDROXYCHLOROQUINE [Suspect]
     Active Substance: HYDROXYCHLOROQUINE
     Route: 048
  58. HYDROXYCHLOROQUINE [Suspect]
     Active Substance: HYDROXYCHLOROQUINE
     Route: 048
  59. HYDROXYCHLOROQUINE [Suspect]
     Active Substance: HYDROXYCHLOROQUINE
     Route: 048
  60. HYDROXYCHLOROQUINE [Suspect]
     Active Substance: HYDROXYCHLOROQUINE
     Route: 065
  61. HYDROXYCHLOROQUINE [Suspect]
     Active Substance: HYDROXYCHLOROQUINE
     Route: 065
  62. HYDROXYCHLOROQUINE [Suspect]
     Active Substance: HYDROXYCHLOROQUINE
     Route: 065
  63. HYDROXYCHLOROQUINE [Suspect]
     Active Substance: HYDROXYCHLOROQUINE
     Route: 065
  64. HYDROXYCHLOROQUINE [Suspect]
     Active Substance: HYDROXYCHLOROQUINE
     Route: 065
  65. HYDROXYCHLOROQUINE [Suspect]
     Active Substance: HYDROXYCHLOROQUINE
     Route: 065
  66. HYDROXYCHLOROQUINE SULFATE [Suspect]
     Active Substance: HYDROXYCHLOROQUINE SULFATE
     Indication: Systemic lupus erythematosus
     Route: 048
  67. HYDROXYCHLOROQUINE SULFATE [Suspect]
     Active Substance: HYDROXYCHLOROQUINE SULFATE
     Indication: Rheumatoid arthritis
     Route: 058
  68. HYDROXYCHLOROQUINE SULFATE [Suspect]
     Active Substance: HYDROXYCHLOROQUINE SULFATE
     Route: 048
  69. HYDROXYCHLOROQUINE SULFATE [Suspect]
     Active Substance: HYDROXYCHLOROQUINE SULFATE
     Route: 065
  70. HYDROXYCHLOROQUINE SULFATE [Suspect]
     Active Substance: HYDROXYCHLOROQUINE SULFATE
     Route: 048
  71. HYDROXYCHLOROQUINE SULFATE [Suspect]
     Active Substance: HYDROXYCHLOROQUINE SULFATE
     Route: 048
  72. HYDROXYCHLOROQUINE SULFATE [Suspect]
     Active Substance: HYDROXYCHLOROQUINE SULFATE
     Route: 065
  73. HYDROXYCHLOROQUINE SULFATE [Suspect]
     Active Substance: HYDROXYCHLOROQUINE SULFATE
     Route: 065
  74. HYDROXYCHLOROQUINE SULFATE [Suspect]
     Active Substance: HYDROXYCHLOROQUINE SULFATE
     Route: 065
  75. HYDROXYCHLOROQUINE SULFATE [Suspect]
     Active Substance: HYDROXYCHLOROQUINE SULFATE
     Route: 065
  76. HYDROXYCHLOROQUINE SULFATE [Suspect]
     Active Substance: HYDROXYCHLOROQUINE SULFATE
     Route: 048
  77. HYDROXYCHLOROQUINE SULFATE [Suspect]
     Active Substance: HYDROXYCHLOROQUINE SULFATE
     Route: 065
  78. HYDROXYCHLOROQUINE SULFATE [Suspect]
     Active Substance: HYDROXYCHLOROQUINE SULFATE
     Route: 048
  79. HYDROXYCHLOROQUINE SULFATE [Suspect]
     Active Substance: HYDROXYCHLOROQUINE SULFATE
     Route: 048
  80. HYDROXYCHLOROQUINE SULFATE [Suspect]
     Active Substance: HYDROXYCHLOROQUINE SULFATE
     Route: 048
  81. HYDROXYCHLOROQUINE SULFATE [Suspect]
     Active Substance: HYDROXYCHLOROQUINE SULFATE
     Route: 048
  82. HYDROXYCHLOROQUINE SULFATE [Suspect]
     Active Substance: HYDROXYCHLOROQUINE SULFATE
     Route: 065
  83. HYDROXYCHLOROQUINE SULFATE [Suspect]
     Active Substance: HYDROXYCHLOROQUINE SULFATE
     Route: 065
  84. HYDROXYCHLOROQUINE SULFATE [Suspect]
     Active Substance: HYDROXYCHLOROQUINE SULFATE
     Route: 065
  85. HYDROXYCHLOROQUINE SULFATE [Suspect]
     Active Substance: HYDROXYCHLOROQUINE SULFATE
     Route: 065
  86. HYDROXYCHLOROQUINE SULFATE [Suspect]
     Active Substance: HYDROXYCHLOROQUINE SULFATE
     Route: 058
  87. ISOPROPYL ALCOHOL [Suspect]
     Active Substance: ISOPROPYL ALCOHOL
     Indication: Product used for unknown indication
     Route: 061
  88. LYRICA [Suspect]
     Active Substance: PREGABALIN
     Indication: Product used for unknown indication
     Route: 065
  89. NAPROXEN SODIUM (NAPROXEN SODIUM) [Suspect]
     Active Substance: NAPROXEN SODIUM
     Indication: Rheumatoid arthritis
     Route: 065
  90. NAPROXEN SODIUM (NAPROXEN SODIUM) [Suspect]
     Active Substance: NAPROXEN SODIUM
     Route: 065
  91. NEOMYCIN [Suspect]
     Active Substance: NEOMYCIN
     Indication: Product used for unknown indication
     Route: 065
  92. ORENCIA [Suspect]
     Active Substance: ABATACEPT
     Indication: Rheumatoid arthritis
     Route: 065
  93. ORENCIA [Suspect]
     Active Substance: ABATACEPT
     Route: 058
  94. ORENCIA [Suspect]
     Active Substance: ABATACEPT
     Route: 058
  95. ORENCIA [Suspect]
     Active Substance: ABATACEPT
     Route: 042
  96. ORENCIA [Suspect]
     Active Substance: ABATACEPT
     Route: 065
  97. ORENCIA [Suspect]
     Active Substance: ABATACEPT
     Route: 058
  98. ORENCIA [Suspect]
     Active Substance: ABATACEPT
     Route: 058
  99. ORENCIA [Suspect]
     Active Substance: ABATACEPT
     Route: 042
  100. OTEZLA [Suspect]
     Active Substance: APREMILAST
     Indication: Product used for unknown indication
     Route: 048
  101. OTEZLA [Suspect]
     Active Substance: APREMILAST
     Route: 048
  102. OXYCODONE TEREPHTHALATE [Suspect]
     Active Substance: OXYCODONE TEREPHTHALATE
     Indication: Product used for unknown indication
     Route: 016
  103. OXYCODONE TEREPHTHALATE [Suspect]
     Active Substance: OXYCODONE TEREPHTHALATE
     Route: 065
  104. PERIOGARD [Suspect]
     Active Substance: CHLORHEXIDINE GLUCONATE
     Indication: Product used for unknown indication
     Route: 002
  105. PERIOGARD [Suspect]
     Active Substance: CHLORHEXIDINE GLUCONATE
     Route: 048
  106. PERIOGARD [Suspect]
     Active Substance: CHLORHEXIDINE GLUCONATE
     Route: 016
  107. PERIOGARD [Suspect]
     Active Substance: CHLORHEXIDINE GLUCONATE
     Route: 065
  108. SULFAMETHOXAZOLE [Suspect]
     Active Substance: SULFAMETHOXAZOLE
     Indication: Rheumatoid arthritis
     Route: 042
  109. SULFAMETHOXAZOLE [Suspect]
     Active Substance: SULFAMETHOXAZOLE
     Route: 065
  110. SULFAMETHOXAZOLE [Suspect]
     Active Substance: SULFAMETHOXAZOLE
     Route: 048
  111. SULFAMETHOXAZOLE [Suspect]
     Active Substance: SULFAMETHOXAZOLE
     Route: 065
  112. SULFAMETHOXAZOLE [Suspect]
     Active Substance: SULFAMETHOXAZOLE
     Route: 048
  113. SULFAMETHOXAZOLE [Suspect]
     Active Substance: SULFAMETHOXAZOLE
     Route: 016
  114. SULFAMETHOXAZOLE [Suspect]
     Active Substance: SULFAMETHOXAZOLE
     Route: 048
  115. SULFAMETHOXAZOLE [Suspect]
     Active Substance: SULFAMETHOXAZOLE
     Route: 048
  116. SULFAMETHOXAZOLE [Suspect]
     Active Substance: SULFAMETHOXAZOLE
     Route: 048
  117. SULFAMETHOXAZOLE [Suspect]
     Active Substance: SULFAMETHOXAZOLE
     Route: 048
  118. SULFAMETHOXAZOLE [Suspect]
     Active Substance: SULFAMETHOXAZOLE
     Route: 065
  119. TUMS ULTRA [Suspect]
     Active Substance: CALCIUM CARBONATE
     Indication: Product used for unknown indication
     Route: 065
  120. TOFACITINIB CITRATE [Suspect]
     Active Substance: TOFACITINIB CITRATE
     Indication: Rheumatoid arthritis
     Route: 065
  121. TOFACITINIB CITRATE [Suspect]
     Active Substance: TOFACITINIB CITRATE
     Indication: Psoriatic arthropathy
     Route: 058
  122. TOFACITINIB CITRATE [Suspect]
     Active Substance: TOFACITINIB CITRATE
     Route: 065
  123. TOFACITINIB CITRATE [Suspect]
     Active Substance: TOFACITINIB CITRATE
     Route: 048
  124. TOFACITINIB CITRATE [Suspect]
     Active Substance: TOFACITINIB CITRATE
     Route: 048
  125. TOFACITINIB CITRATE [Suspect]
     Active Substance: TOFACITINIB CITRATE
     Route: 065
  126. PANADOL [Suspect]
     Active Substance: ACETAMINOPHEN
     Indication: Rheumatoid arthritis
     Route: 065
  127. PANADOL [Suspect]
     Active Substance: ACETAMINOPHEN
     Route: 065
  128. CELECOXIB [Suspect]
     Active Substance: CELECOXIB
     Indication: Product used for unknown indication
     Route: 065
  129. CELECOXIB [Suspect]
     Active Substance: CELECOXIB
     Route: 065
  130. COSENTYX [Suspect]
     Active Substance: SECUKINUMAB
     Indication: Psoriatic arthropathy
     Route: 065
  131. COSENTYX [Suspect]
     Active Substance: SECUKINUMAB
     Indication: Rheumatoid arthritis
     Route: 005
  132. DICLOFENAC SODIUM [Suspect]
     Active Substance: DICLOFENAC\DICLOFENAC SODIUM
     Indication: Product used for unknown indication
     Route: 058
  133. DICLOFENAC SODIUM [Suspect]
     Active Substance: DICLOFENAC\DICLOFENAC SODIUM
     Route: 065
  134. DICLOFENAC SODIUM [Suspect]
     Active Substance: DICLOFENAC\DICLOFENAC SODIUM
     Route: 058
  135. DICLOFENAC SODIUM [Suspect]
     Active Substance: DICLOFENAC\DICLOFENAC SODIUM
     Route: 031
  136. DICLOFENAC SODIUM [Suspect]
     Active Substance: DICLOFENAC\DICLOFENAC SODIUM
     Route: 065
  137. DICLOFENAC SODIUM [Suspect]
     Active Substance: DICLOFENAC\DICLOFENAC SODIUM
     Route: 048
  138. DICLOFENAC SODIUM [Suspect]
     Active Substance: DICLOFENAC\DICLOFENAC SODIUM
     Route: 065
  139. DICLOFENAC SODIUM [Suspect]
     Active Substance: DICLOFENAC\DICLOFENAC SODIUM
     Route: 058
  140. DICLOFENAC SODIUM [Suspect]
     Active Substance: DICLOFENAC\DICLOFENAC SODIUM
     Route: 065
  141. DICLOFENAC SODIUM [Suspect]
     Active Substance: DICLOFENAC\DICLOFENAC SODIUM
     Route: 058
  142. DICLOFENAC SODIUM [Suspect]
     Active Substance: DICLOFENAC\DICLOFENAC SODIUM
     Route: 065
  143. OXYCODONE [Suspect]
     Active Substance: OXYCODONE\OXYCODONE HYDROCHLORIDE
     Indication: Product used for unknown indication
     Route: 065
  144. LEFLUNOMIDE [Suspect]
     Active Substance: LEFLUNOMIDE
     Indication: Rheumatoid arthritis
     Route: 048
  145. LEFLUNOMIDE [Suspect]
     Active Substance: LEFLUNOMIDE
     Route: 065
  146. LEFLUNOMIDE [Suspect]
     Active Substance: LEFLUNOMIDE
     Route: 048
  147. METHOTREXATE [Suspect]
     Active Substance: METHOTREXATE
     Indication: Rheumatoid arthritis
     Route: 055
  148. METHOTREXATE [Suspect]
     Active Substance: METHOTREXATE
     Route: 048
  149. METHOTREXATE [Suspect]
     Active Substance: METHOTREXATE
     Route: 058
  150. METHOTREXATE [Suspect]
     Active Substance: METHOTREXATE
     Route: 048
  151. METHOTREXATE [Suspect]
     Active Substance: METHOTREXATE
     Route: 013
  152. METHOTREXATE [Suspect]
     Active Substance: METHOTREXATE
     Route: 065
  153. METHOTREXATE [Suspect]
     Active Substance: METHOTREXATE
     Route: 013
  154. METHOTREXATE [Suspect]
     Active Substance: METHOTREXATE
     Route: 048
  155. METHOTREXATE [Suspect]
     Active Substance: METHOTREXATE
     Route: 048
  156. METHOTREXATE [Suspect]
     Active Substance: METHOTREXATE
     Route: 065
  157. METHOTREXATE [Suspect]
     Active Substance: METHOTREXATE
     Route: 048
  158. METHOTREXATE [Suspect]
     Active Substance: METHOTREXATE
     Route: 048
  159. METHOTREXATE [Suspect]
     Active Substance: METHOTREXATE
     Route: 048
  160. METHOTREXATE [Suspect]
     Active Substance: METHOTREXATE
     Route: 048
  161. METHOTREXATE [Suspect]
     Active Substance: METHOTREXATE
     Route: 048
  162. METHOTREXATE [Suspect]
     Active Substance: METHOTREXATE
     Route: 048
  163. METHOTREXATE [Suspect]
     Active Substance: METHOTREXATE
     Route: 048
  164. METHOTREXATE [Suspect]
     Active Substance: METHOTREXATE
     Route: 058
  165. METHOTREXATE [Suspect]
     Active Substance: METHOTREXATE
     Route: 065
  166. METHOTREXATE [Suspect]
     Active Substance: METHOTREXATE
     Route: 058
  167. METHOTREXATE [Suspect]
     Active Substance: METHOTREXATE
     Route: 013
  168. METHOTREXATE [Suspect]
     Active Substance: METHOTREXATE
     Route: 037
  169. METHOTREXATE [Suspect]
     Active Substance: METHOTREXATE
     Route: 065
  170. METHOTREXATE [Suspect]
     Active Substance: METHOTREXATE
     Route: 065
  171. METHOTREXATE [Suspect]
     Active Substance: METHOTREXATE
     Route: 048
  172. METHOTREXATE [Suspect]
     Active Substance: METHOTREXATE
     Route: 048
  173. METHOTREXATE [Suspect]
     Active Substance: METHOTREXATE
     Route: 013
  174. METHOTREXATE [Suspect]
     Active Substance: METHOTREXATE
     Route: 058
  175. METHOTREXATE [Suspect]
     Active Substance: METHOTREXATE
     Route: 065
  176. METHOTREXATE [Suspect]
     Active Substance: METHOTREXATE
     Route: 048
  177. METHOTREXATE [Suspect]
     Active Substance: METHOTREXATE
     Route: 058
  178. METHOTREXATE [Suspect]
     Active Substance: METHOTREXATE
     Route: 058
  179. METHOTREXATE [Suspect]
     Active Substance: METHOTREXATE
     Route: 058
  180. METHOTREXATE [Suspect]
     Active Substance: METHOTREXATE
     Route: 065
  181. METHOTREXATE [Suspect]
     Active Substance: METHOTREXATE
     Route: 048
  182. METHOTREXATE [Suspect]
     Active Substance: METHOTREXATE
     Route: 048
  183. METHOTREXATE [Suspect]
     Active Substance: METHOTREXATE
     Route: 048
  184. METHOTREXATE [Suspect]
     Active Substance: METHOTREXATE
     Route: 048
  185. METHOTREXATE [Suspect]
     Active Substance: METHOTREXATE
     Route: 048
  186. METHOTREXATE [Suspect]
     Active Substance: METHOTREXATE
     Route: 065
  187. METHOTREXATE [Suspect]
     Active Substance: METHOTREXATE
     Route: 048
  188. METHOTREXATE [Suspect]
     Active Substance: METHOTREXATE
     Route: 048
  189. METHOTREXATE [Suspect]
     Active Substance: METHOTREXATE
     Route: 058
  190. METHOTREXATE [Suspect]
     Active Substance: METHOTREXATE
     Route: 048
  191. METHOTREXATE [Suspect]
     Active Substance: METHOTREXATE
     Route: 048
  192. METHOTREXATE [Suspect]
     Active Substance: METHOTREXATE
     Route: 048
  193. METHOTREXATE [Suspect]
     Active Substance: METHOTREXATE
     Route: 065
  194. METHOTREXATE [Suspect]
     Active Substance: METHOTREXATE
     Route: 013
  195. METHOTREXATE [Suspect]
     Active Substance: METHOTREXATE
     Route: 048
  196. METHOTREXATE [Suspect]
     Active Substance: METHOTREXATE
     Route: 048
  197. PANTOPRAZOLE SODIUM [Suspect]
     Active Substance: PANTOPRAZOLE SODIUM
     Indication: Product used for unknown indication
     Route: 065
  198. HYDROCORTISONE [Suspect]
     Active Substance: HYDROCORTISONE\HYDROCORTISONE ACETATE
     Indication: Rheumatoid arthritis
     Route: 048
  199. HYDROCORTISONE [Suspect]
     Active Substance: HYDROCORTISONE\HYDROCORTISONE ACETATE
     Route: 058
  200. HYDROCORTISONE [Suspect]
     Active Substance: HYDROCORTISONE\HYDROCORTISONE ACETATE
     Route: 003
  201. HYDROCORTISONE [Suspect]
     Active Substance: HYDROCORTISONE\HYDROCORTISONE ACETATE
     Route: 048
  202. HYDROCORTISONE [Suspect]
     Active Substance: HYDROCORTISONE\HYDROCORTISONE ACETATE
     Route: 061
  203. HYDROCORTISONE [Suspect]
     Active Substance: HYDROCORTISONE\HYDROCORTISONE ACETATE
     Route: 058
  204. HYDROCORTISONE [Suspect]
     Active Substance: HYDROCORTISONE\HYDROCORTISONE ACETATE
     Route: 058
  205. HYDROCORTISONE [Suspect]
     Active Substance: HYDROCORTISONE\HYDROCORTISONE ACETATE
     Route: 058
  206. HYDROCORTISONE [Suspect]
     Active Substance: HYDROCORTISONE\HYDROCORTISONE ACETATE
     Route: 003
  207. HYDROCORTISONE [Suspect]
     Active Substance: HYDROCORTISONE\HYDROCORTISONE ACETATE
     Route: 003
  208. HYDROCORTISONE [Suspect]
     Active Substance: HYDROCORTISONE\HYDROCORTISONE ACETATE
     Route: 065
  209. HYDROCORTISONE [Suspect]
     Active Substance: HYDROCORTISONE\HYDROCORTISONE ACETATE
     Route: 003
  210. HYDROCORTISONE [Suspect]
     Active Substance: HYDROCORTISONE\HYDROCORTISONE ACETATE
     Route: 048
  211. ARAVA [Suspect]
     Active Substance: LEFLUNOMIDE
     Indication: Rheumatoid arthritis
     Route: 048
  212. ARAVA [Suspect]
     Active Substance: LEFLUNOMIDE
     Route: 065
  213. ARAVA [Suspect]
     Active Substance: LEFLUNOMIDE
     Route: 048
  214. ARAVA [Suspect]
     Active Substance: LEFLUNOMIDE
     Route: 048
  215. CELEBREX [Suspect]
     Active Substance: CELECOXIB
     Indication: Product used for unknown indication
     Route: 048
  216. CELEBREX [Suspect]
     Active Substance: CELECOXIB
     Route: 065
  217. CHLORAPREP [Suspect]
     Active Substance: CHLORHEXIDINE GLUCONATE\ISOPROPYL ALCOHOL
     Indication: Product used for unknown indication
     Route: 061
  218. CHLORAPREP [Suspect]
     Active Substance: CHLORHEXIDINE GLUCONATE\ISOPROPYL ALCOHOL
     Route: 065
  219. CHLORAPREP [Suspect]
     Active Substance: CHLORHEXIDINE GLUCONATE\ISOPROPYL ALCOHOL
     Route: 061
  220. CHLORHEXIDINE [Suspect]
     Active Substance: CHLORHEXIDINE\CHLORHEXIDINE GLUCONATE
     Indication: Product used for unknown indication
     Route: 048
  221. CHLORHEXIDINE [Suspect]
     Active Substance: CHLORHEXIDINE\CHLORHEXIDINE GLUCONATE
     Route: 061
  222. CHLORHEXIDINE [Suspect]
     Active Substance: CHLORHEXIDINE\CHLORHEXIDINE GLUCONATE
     Route: 002
  223. CHLORHEXIDINE [Suspect]
     Active Substance: CHLORHEXIDINE\CHLORHEXIDINE GLUCONATE
     Route: 048
  224. CHLORHEXIDINE [Suspect]
     Active Substance: CHLORHEXIDINE\CHLORHEXIDINE GLUCONATE
     Route: 065
  225. CHLORHEXIDINE GLUCONATE\ISOPROPYL ALCOHOL [Suspect]
     Active Substance: CHLORHEXIDINE GLUCONATE\ISOPROPYL ALCOHOL
     Indication: Product used for unknown indication
     Route: 002
  226. CHLORHEXIDINE GLUCONATE\ISOPROPYL ALCOHOL [Suspect]
     Active Substance: CHLORHEXIDINE GLUCONATE\ISOPROPYL ALCOHOL
     Route: 061
  227. CHLORHEXIDINE GLUCONATE\ISOPROPYL ALCOHOL [Suspect]
     Active Substance: CHLORHEXIDINE GLUCONATE\ISOPROPYL ALCOHOL
     Route: 048
  228. CIMZIA [Suspect]
     Active Substance: CERTOLIZUMAB PEGOL
     Indication: Rheumatoid arthritis
     Route: 058
  229. CIMZIA [Suspect]
     Active Substance: CERTOLIZUMAB PEGOL
     Route: 058
  230. CIMZIA [Suspect]
     Active Substance: CERTOLIZUMAB PEGOL
     Route: 058
  231. CIMZIA [Suspect]
     Active Substance: CERTOLIZUMAB PEGOL
     Route: 058
  232. CIMZIA [Suspect]
     Active Substance: CERTOLIZUMAB PEGOL
     Route: 058
  233. CIMZIA [Suspect]
     Active Substance: CERTOLIZUMAB PEGOL
     Route: 065
  234. CIMZIA [Suspect]
     Active Substance: CERTOLIZUMAB PEGOL
     Route: 065
  235. CIMZIA [Suspect]
     Active Substance: CERTOLIZUMAB PEGOL
     Route: 065
  236. CIMZIA [Suspect]
     Active Substance: CERTOLIZUMAB PEGOL
     Route: 065
  237. CIMZIA [Suspect]
     Active Substance: CERTOLIZUMAB PEGOL
     Route: 058
  238. CALCIUM [Suspect]
     Active Substance: CALCIUM
     Indication: Product used for unknown indication
     Route: 065
  239. CALCIUM [Suspect]
     Active Substance: CALCIUM
     Route: 065
  240. TRAMADOL HYDROCHLORIDE [Suspect]
     Active Substance: TRAMADOL HYDROCHLORIDE
     Indication: Product used for unknown indication
     Route: 065
  241. CHLORHEXIDINE GLUCONATE [Suspect]
     Active Substance: CHLORHEXIDINE GLUCONATE
     Indication: Product used for unknown indication
     Route: 002
  242. CHLORHEXIDINE GLUCONATE [Suspect]
     Active Substance: CHLORHEXIDINE GLUCONATE
     Route: 061
  243. CHLORHEXIDINE GLUCONATE [Suspect]
     Active Substance: CHLORHEXIDINE GLUCONATE
     Route: 048
  244. USTEKINUMAB [Suspect]
     Active Substance: USTEKINUMAB
     Indication: Psoriatic arthropathy
     Route: 058
  245. USTEKINUMAB [Suspect]
     Active Substance: USTEKINUMAB
     Route: 065
  246. VITAMIN C [Suspect]
     Active Substance: ASCORBIC ACID
     Indication: Product used for unknown indication
     Route: 016
  247. VITAMIN D3 [Suspect]
     Active Substance: CHOLECALCIFEROL
     Indication: Product used for unknown indication
     Route: 065
  248. TRIAMCINOLONE ACETONIDE [Suspect]
     Active Substance: TRIAMCINOLONE ACETONIDE
     Indication: Rheumatoid arthritis
     Dosage: SUSPENSION
     Route: 014
  249. XELJANZ [Suspect]
     Active Substance: TOFACITINIB CITRATE
     Indication: Rheumatoid arthritis
     Route: 065
  250. XELJANZ [Suspect]
     Active Substance: TOFACITINIB CITRATE
     Route: 048
  251. HYDROCORTISONE BUTYRATE [Suspect]
     Active Substance: HYDROCORTISONE BUTYRATE
     Indication: Rheumatoid arthritis
     Route: 058
  252. APREPITANT [Suspect]
     Active Substance: APREPITANT
     Indication: Product used for unknown indication
     Route: 042
  253. OXYCODONE HYDROCHLORIDE [Suspect]
     Active Substance: OXYCODONE HYDROCHLORIDE
     Indication: Product used for unknown indication
     Route: 065
  254. FLUMETHASONE PIVALATE\NEOMYCIN SULFATE [Suspect]
     Active Substance: FLUMETHASONE PIVALATE\NEOMYCIN SULFATE
     Indication: Rheumatoid arthritis
     Route: 065
  255. ETANERCEPT [Suspect]
     Active Substance: ETANERCEPT
     Indication: Rheumatoid arthritis
     Route: 065
  256. ETANERCEPT [Suspect]
     Active Substance: ETANERCEPT
     Route: 058
  257. INFLIXIMAB [Suspect]
     Active Substance: INFLIXIMAB
     Indication: Rheumatoid arthritis
     Route: 042
  258. INFLIXIMAB [Suspect]
     Active Substance: INFLIXIMAB
     Route: 065
  259. INFLIXIMAB [Suspect]
     Active Substance: INFLIXIMAB
     Route: 042
  260. RITUXIMAB [Suspect]
     Active Substance: RITUXIMAB
     Indication: Rheumatoid arthritis
     Route: 042
  261. RITUXIMAB [Suspect]
     Active Substance: RITUXIMAB
     Route: 058
  262. RITUXIMAB [Suspect]
     Active Substance: RITUXIMAB
     Route: 042
  263. RITUXIMAB [Suspect]
     Active Substance: RITUXIMAB
     Route: 042
  264. ACTEMRA [Suspect]
     Active Substance: TOCILIZUMAB
     Route: 042
  265. ACTEMRA [Suspect]
     Active Substance: TOCILIZUMAB
     Route: 042
  266. ACTEMRA [Suspect]
     Active Substance: TOCILIZUMAB
     Route: 042
  267. ACTEMRA [Suspect]
     Active Substance: TOCILIZUMAB
     Route: 042
  268. ACTEMRA [Suspect]
     Active Substance: TOCILIZUMAB
     Route: 042
  269. ACTEMRA [Suspect]
     Active Substance: TOCILIZUMAB
  270. ACTEMRA [Suspect]
     Active Substance: TOCILIZUMAB
  271. ACTEMRA [Suspect]
     Active Substance: TOCILIZUMAB
  272. ACTEMRA [Suspect]
     Active Substance: TOCILIZUMAB
     Route: 042
  273. ACTEMRA [Suspect]
     Active Substance: TOCILIZUMAB
     Route: 058
  274. ACTEMRA [Suspect]
     Active Substance: TOCILIZUMAB
     Route: 042
  275. ACTEMRA [Suspect]
     Active Substance: TOCILIZUMAB
     Route: 065
  276. ACTEMRA [Suspect]
     Active Substance: TOCILIZUMAB
     Route: 042
  277. ACTEMRA [Suspect]
     Active Substance: TOCILIZUMAB
     Route: 042
  278. ACTEMRA [Suspect]
     Active Substance: TOCILIZUMAB
     Route: 042
  279. APREMILAST [Suspect]
     Active Substance: APREMILAST
     Indication: Product used for unknown indication
     Route: 065
  280. APREMILAST [Suspect]
     Active Substance: APREMILAST
     Route: 042
  281. PREDNISONE [Suspect]
     Active Substance: PREDNISONE
     Indication: Rheumatoid arthritis
     Route: 048
  282. PREDNISONE [Suspect]
     Active Substance: PREDNISONE
     Route: 065
  283. PREDNISONE [Suspect]
     Active Substance: PREDNISONE
     Route: 065
  284. PREDNISONE [Suspect]
     Active Substance: PREDNISONE
     Route: 048
  285. CORTISONE ACETATE [Suspect]
     Active Substance: CORTISONE ACETATE
     Indication: Rheumatoid arthritis
     Route: 003
  286. CORTISONE ACETATE [Suspect]
     Active Substance: CORTISONE ACETATE
     Route: 048
  287. CORTISONE ACETATE [Suspect]
     Active Substance: CORTISONE ACETATE
     Route: 048
  288. CORTISONE ACETATE [Suspect]
     Active Substance: CORTISONE ACETATE
     Route: 065
  289. CORTISONE ACETATE [Suspect]
     Active Substance: CORTISONE ACETATE
     Route: 061
  290. CORTISONE ACETATE [Suspect]
     Active Substance: CORTISONE ACETATE
     Route: 061
  291. CORTISONE ACETATE [Suspect]
     Active Substance: CORTISONE ACETATE
     Route: 065
  292. CORTISONE ACETATE [Suspect]
     Active Substance: CORTISONE ACETATE
     Route: 048
  293. CORTISONE ACETATE [Suspect]
     Active Substance: CORTISONE ACETATE
     Route: 065
  294. DESOXIMETASONE [Suspect]
     Active Substance: DESOXIMETASONE
     Indication: Rheumatoid arthritis
     Route: 003
  295. DESOXIMETASONE [Suspect]
     Active Substance: DESOXIMETASONE
     Route: 048
  296. DESOXIMETASONE [Suspect]
     Active Substance: DESOXIMETASONE
     Route: 048
  297. DESOXIMETASONE [Suspect]
     Active Substance: DESOXIMETASONE
     Route: 003
  298. DESOXIMETASONE [Suspect]
     Active Substance: DESOXIMETASONE
     Route: 048
  299. DESOXIMETASONE [Suspect]
     Active Substance: DESOXIMETASONE
     Route: 061
  300. DESOXIMETASONE [Suspect]
     Active Substance: DESOXIMETASONE
     Route: 065
  301. DESOXIMETASONE [Suspect]
     Active Substance: DESOXIMETASONE
     Route: 058
  302. DESOXIMETASONE [Suspect]
     Active Substance: DESOXIMETASONE
  303. DESOXIMETASONE [Suspect]
     Active Substance: DESOXIMETASONE
     Route: 003
  304. DESOXIMETASONE [Suspect]
     Active Substance: DESOXIMETASONE
     Route: 042
  305. DESOXIMETASONE [Suspect]
     Active Substance: DESOXIMETASONE
     Route: 048
  306. DESOXIMETASONE [Suspect]
     Active Substance: DESOXIMETASONE
     Route: 065
  307. DESOXIMETASONE [Suspect]
     Active Substance: DESOXIMETASONE
     Route: 065
  308. DESOXIMETASONE [Suspect]
     Active Substance: DESOXIMETASONE
     Route: 061
  309. DESOXIMETASONE [Suspect]
     Active Substance: DESOXIMETASONE
     Route: 061
  310. DESOXIMETASONE [Suspect]
     Active Substance: DESOXIMETASONE
     Route: 065
  311. DESOXIMETASONE [Suspect]
     Active Substance: DESOXIMETASONE
     Route: 065
  312. DESOXIMETASONE [Suspect]
     Active Substance: DESOXIMETASONE
     Route: 065
  313. DESOXIMETASONE [Suspect]
     Active Substance: DESOXIMETASONE
     Route: 058
  314. DESOXIMETASONE [Suspect]
     Active Substance: DESOXIMETASONE
     Route: 058
  315. DESOXIMETASONE [Suspect]
     Active Substance: DESOXIMETASONE
     Route: 061
  316. DESOXIMETASONE [Suspect]
     Active Substance: DESOXIMETASONE
     Route: 048
  317. DESOXIMETASONE [Suspect]
     Active Substance: DESOXIMETASONE
     Route: 048
  318. DESOXIMETASONE [Suspect]
     Active Substance: DESOXIMETASONE
     Route: 048
  319. DESOXIMETASONE [Suspect]
     Active Substance: DESOXIMETASONE
     Route: 048
  320. DESOXIMETASONE [Suspect]
     Active Substance: DESOXIMETASONE
     Route: 003
  321. ENBREL [Suspect]
     Active Substance: BENZYL ALCOHOL\ETANERCEPT
     Indication: Rheumatoid arthritis
     Route: 058
  322. ENBREL [Suspect]
     Active Substance: BENZYL ALCOHOL\ETANERCEPT
     Indication: Psoriatic arthropathy
     Route: 058
  323. ENBREL [Suspect]
     Active Substance: BENZYL ALCOHOL\ETANERCEPT
     Route: 058
  324. ENBREL [Suspect]
     Active Substance: BENZYL ALCOHOL\ETANERCEPT
     Route: 065
  325. ENBREL [Suspect]
     Active Substance: BENZYL ALCOHOL\ETANERCEPT
     Route: 058
  326. ENBREL [Suspect]
     Active Substance: BENZYL ALCOHOL\ETANERCEPT
     Route: 058
  327. ENBREL [Suspect]
     Active Substance: BENZYL ALCOHOL\ETANERCEPT
     Route: 058
  328. ENBREL [Suspect]
     Active Substance: BENZYL ALCOHOL\ETANERCEPT
     Route: 065
  329. FOSAMAX [Suspect]
     Active Substance: ALENDRONATE SODIUM
     Indication: Rheumatoid arthritis
     Route: 058
  330. FOSAMAX [Suspect]
     Active Substance: ALENDRONATE SODIUM
     Route: 048
  331. FOSAMAX [Suspect]
     Active Substance: ALENDRONATE SODIUM
     Route: 065
  332. HUMIRA [Suspect]
     Active Substance: ADALIMUMAB
     Indication: Rheumatoid arthritis
     Route: 058
  333. HUMIRA [Suspect]
     Active Substance: ADALIMUMAB
     Indication: Psoriatic arthropathy
     Route: 058
  334. HUMIRA [Suspect]
     Active Substance: ADALIMUMAB
     Route: 058
  335. HUMIRA [Suspect]
     Active Substance: ADALIMUMAB
     Route: 058
  336. HUMIRA [Suspect]
     Active Substance: ADALIMUMAB
     Route: 065
  337. HUMIRA [Suspect]
     Active Substance: ADALIMUMAB
     Route: 065
  338. HUMIRA [Suspect]
     Active Substance: ADALIMUMAB
     Route: 058
  339. HYDROCORTISONE PROBUTATE [Suspect]
     Active Substance: HYDROCORTISONE PROBUTATE
     Indication: Rheumatoid arthritis
     Route: 058
  340. HYDROCORTISONE SODIUM SUCCINATE [Suspect]
     Active Substance: HYDROCORTISONE SODIUM SUCCINATE
     Indication: Rheumatoid arthritis
     Route: 048
  341. HYDROCORTISONE SODIUM SUCCINATE [Suspect]
     Active Substance: HYDROCORTISONE SODIUM SUCCINATE
     Route: 065
  342. HYDROCORTISONE SODIUM SUCCINATE [Suspect]
     Active Substance: HYDROCORTISONE SODIUM SUCCINATE
     Route: 048
  343. HYDROCORTISONE SODIUM SUCCINATE [Suspect]
     Active Substance: HYDROCORTISONE SODIUM SUCCINATE
     Route: 065
  344. PHTHALYLSULFATHIAZOLE [Suspect]
     Active Substance: PHTHALYLSULFATHIAZOLE
     Indication: Rheumatoid arthritis
     Route: 042
  345. PHTHALYLSULFATHIAZOLE [Suspect]
     Active Substance: PHTHALYLSULFATHIAZOLE
     Route: 048
  346. PHTHALYLSULFATHIAZOLE [Suspect]
     Active Substance: PHTHALYLSULFATHIAZOLE
     Route: 065
  347. PHTHALYLSULFATHIAZOLE [Suspect]
     Active Substance: PHTHALYLSULFATHIAZOLE
     Route: 048
  348. PHTHALYLSULFATHIAZOLE [Suspect]
     Active Substance: PHTHALYLSULFATHIAZOLE
     Route: 065
  349. PHTHALYLSULFATHIAZOLE [Suspect]
     Active Substance: PHTHALYLSULFATHIAZOLE
     Route: 048
  350. PHTHALYLSULFATHIAZOLE [Suspect]
     Active Substance: PHTHALYLSULFATHIAZOLE
     Route: 016
  351. PHTHALYLSULFATHIAZOLE [Suspect]
     Active Substance: PHTHALYLSULFATHIAZOLE
     Dosage: (1000 MG BID)
     Route: 048
  352. PHTHALYLSULFATHIAZOLE [Suspect]
     Active Substance: PHTHALYLSULFATHIAZOLE
     Route: 048
  353. PHTHALYLSULFATHIAZOLE [Suspect]
     Active Substance: PHTHALYLSULFATHIAZOLE
     Route: 048
  354. PHTHALYLSULFATHIAZOLE [Suspect]
     Active Substance: PHTHALYLSULFATHIAZOLE
     Route: 065
  355. PREDNISONE [Suspect]
     Active Substance: PREDNISONE
     Indication: Rheumatoid arthritis
  356. PREDNISONE [Suspect]
     Active Substance: PREDNISONE
     Indication: Psoriatic arthropathy
  357. PREDNISONE [Suspect]
     Active Substance: PREDNISONE
     Indication: Condition aggravated
     Route: 048
  358. PREDNISONE [Suspect]
     Active Substance: PREDNISONE
     Route: 048
  359. PREDNISONE [Suspect]
     Active Substance: PREDNISONE
     Route: 048
  360. PREDNISONE [Suspect]
     Active Substance: PREDNISONE
     Route: 042
  361. PREDNISONE [Suspect]
     Active Substance: PREDNISONE
     Route: 048
  362. PREDNISONE [Suspect]
     Active Substance: PREDNISONE
     Route: 065
  363. PSEUDOEPHEDRINE [Suspect]
     Active Substance: PSEUDOEPHEDRINE
     Indication: Product used for unknown indication
     Route: 065
  364. PREGABALIN [Suspect]
     Active Substance: PREGABALIN
     Indication: Product used for unknown indication
     Route: 065
  365. PSEUDOEPHEDRINE HYDROCHLORIDE [Suspect]
     Active Substance: PSEUDOEPHEDRINE HYDROCHLORIDE
     Indication: Rheumatoid arthritis
  366. PSEUDOEPHEDRINE HYDROCHLORIDE [Suspect]
     Active Substance: PSEUDOEPHEDRINE HYDROCHLORIDE
  367. PSEUDOEPHEDRINE HYDROCHLORIDE [Suspect]
     Active Substance: PSEUDOEPHEDRINE HYDROCHLORIDE
  368. CETIRIZINE HYDROCHLORIDE\PSEUDOEPHEDRINE HYDROCHLORIDE [Suspect]
     Active Substance: CETIRIZINE HYDROCHLORIDE\PSEUDOEPHEDRINE HYDROCHLORIDE
     Indication: Rheumatoid arthritis
     Route: 048
  369. CETIRIZINE HYDROCHLORIDE\PSEUDOEPHEDRINE HYDROCHLORIDE [Suspect]
     Active Substance: CETIRIZINE HYDROCHLORIDE\PSEUDOEPHEDRINE HYDROCHLORIDE
     Route: 065
  370. CETIRIZINE HYDROCHLORIDE\PSEUDOEPHEDRINE HYDROCHLORIDE [Suspect]
     Active Substance: CETIRIZINE HYDROCHLORIDE\PSEUDOEPHEDRINE HYDROCHLORIDE
     Route: 065
  371. CETIRIZINE HYDROCHLORIDE\PSEUDOEPHEDRINE HYDROCHLORIDE [Suspect]
     Active Substance: CETIRIZINE HYDROCHLORIDE\PSEUDOEPHEDRINE HYDROCHLORIDE
  372. CETIRIZINE HYDROCHLORIDE\PSEUDOEPHEDRINE HYDROCHLORIDE [Suspect]
     Active Substance: CETIRIZINE HYDROCHLORIDE\PSEUDOEPHEDRINE HYDROCHLORIDE
     Route: 065
  373. REMICADE [Suspect]
     Active Substance: INFLIXIMAB
     Indication: Rheumatoid arthritis
  374. REMICADE [Suspect]
     Active Substance: INFLIXIMAB
     Route: 042
  375. REMICADE [Suspect]
     Active Substance: INFLIXIMAB
     Route: 042
  376. REMICADE [Suspect]
     Active Substance: INFLIXIMAB
     Route: 065
  377. SULFASALAZINE [Suspect]
     Active Substance: SULFASALAZINE
     Indication: Rheumatoid arthritis
     Route: 065
  378. SULFASALAZINE [Suspect]
     Active Substance: SULFASALAZINE
     Route: 048
  379. SULFASALAZINE [Suspect]
     Active Substance: SULFASALAZINE
     Route: 048
  380. SULFASALAZINE [Suspect]
     Active Substance: SULFASALAZINE
     Route: 048
  381. SULFASALAZINE [Suspect]
     Active Substance: SULFASALAZINE
     Route: 048
  382. SULFASALAZINE [Suspect]
     Active Substance: SULFASALAZINE
     Route: 065
  383. SULFASALAZINE [Suspect]
     Active Substance: SULFASALAZINE
     Route: 048
  384. SULFASALAZINE [Suspect]
     Active Substance: SULFASALAZINE
     Dosage: (1 G, BID)
     Route: 065
  385. SIMPONI [Suspect]
     Active Substance: GOLIMUMAB
     Indication: Rheumatoid arthritis
     Route: 058
  386. SIMPONI [Suspect]
     Active Substance: GOLIMUMAB
     Indication: Psoriatic arthropathy
     Route: 058
  387. SIMPONI [Suspect]
     Active Substance: GOLIMUMAB
     Route: 052
  388. SIMPONI [Suspect]
     Active Substance: GOLIMUMAB
     Route: 042
  389. SIMPONI [Suspect]
     Active Substance: GOLIMUMAB
     Route: 065
  390. STELARA [Suspect]
     Active Substance: USTEKINUMAB
     Indication: Product used for unknown indication
     Route: 058
  391. STELARA [Suspect]
     Active Substance: USTEKINUMAB
     Route: 058
  392. STELARA [Suspect]
     Active Substance: USTEKINUMAB
     Route: 042
  393. STELARA [Suspect]
     Active Substance: USTEKINUMAB
     Route: 058
  394. STELARA [Suspect]
     Active Substance: USTEKINUMAB
     Route: 065
  395. SULFAMETHOXAZOLE\TRIMETHOPRIM [Suspect]
     Active Substance: SULFAMETHOXAZOLE\TRIMETHOPRIM
     Indication: Product used for unknown indication
     Route: 065
  396. SULFASALAZINE [Suspect]
     Active Substance: SULFASALAZINE
     Indication: Rheumatoid arthritis
     Route: 065
  397. SULFASALAZINE [Suspect]
     Active Substance: SULFASALAZINE
     Route: 048
  398. SULFASALAZINE [Suspect]
     Active Substance: SULFASALAZINE
  399. SULFASALAZINE [Suspect]
     Active Substance: SULFASALAZINE
     Route: 048
  400. SULFASALAZINE [Suspect]
     Active Substance: SULFASALAZINE
     Route: 048
  401. SULFASALAZINE [Suspect]
     Active Substance: SULFASALAZINE
     Route: 048
  402. SULFASALAZINE [Suspect]
     Active Substance: SULFASALAZINE
     Dosage: (1 G, BID)
  403. SULFASALAZINE [Suspect]
     Active Substance: SULFASALAZINE
     Route: 048
  404. SULFASALAZINE [Suspect]
     Active Substance: SULFASALAZINE
     Route: 048
  405. SULFASALAZINE [Suspect]
     Active Substance: SULFASALAZINE
  406. SULFASALAZINE [Suspect]
     Active Substance: SULFASALAZINE
     Route: 048
  407. SULFASALAZINE [Suspect]
     Active Substance: SULFASALAZINE
     Route: 048
  408. SULFASALAZINE [Suspect]
     Active Substance: SULFASALAZINE
     Route: 048
  409. SULFASALAZINE [Suspect]
     Active Substance: SULFASALAZINE
     Route: 058
  410. SULFASALAZINE [Suspect]
     Active Substance: SULFASALAZINE
     Route: 058
  411. SULFASALAZINE [Suspect]
     Active Substance: SULFASALAZINE
     Route: 048
  412. SULFASALAZINE [Suspect]
     Active Substance: SULFASALAZINE
  413. SULFASALAZINE [Suspect]
     Active Substance: SULFASALAZINE
     Route: 065
  414. SULFASALAZINE [Suspect]
     Active Substance: SULFASALAZINE
     Route: 048
  415. SULFASALAZINE [Suspect]
     Active Substance: SULFASALAZINE
     Route: 048
  416. SULFASALAZINE [Suspect]
     Active Substance: SULFASALAZINE
     Route: 048
  417. SULFASALAZINE [Suspect]
     Active Substance: SULFASALAZINE
     Route: 048
  418. SULFASALAZINE [Suspect]
     Active Substance: SULFASALAZINE
     Route: 048
  419. PERCOCET [Suspect]
     Active Substance: ACETAMINOPHEN\OXYCODONE HYDROCHLORIDE
     Indication: Product used for unknown indication
     Route: 065
  420. TOCILIZUMAB [Suspect]
     Active Substance: TOCILIZUMAB
     Indication: Rheumatoid arthritis
     Route: 065
  421. TOCILIZUMAB [Suspect]
     Active Substance: TOCILIZUMAB
     Route: 058
  422. FLUMETHASONE PIVALATE [Suspect]
     Active Substance: FLUMETHASONE PIVALATE
     Indication: Rheumatoid arthritis
     Route: 058
  423. CETIRIZINE HYDROCHLORIDE [Suspect]
     Active Substance: CETIRIZINE HYDROCHLORIDE
     Indication: Rheumatoid arthritis
     Route: 048
  424. CETIRIZINE HYDROCHLORIDE [Suspect]
     Active Substance: CETIRIZINE HYDROCHLORIDE
     Route: 065
  425. CETIRIZINE HYDROCHLORIDE [Suspect]
     Active Substance: CETIRIZINE HYDROCHLORIDE
     Route: 065
  426. GOLIMUMAB [Suspect]
     Active Substance: GOLIMUMAB
     Indication: Rheumatoid arthritis
     Route: 058
  427. GOLIMUMAB [Suspect]
     Active Substance: GOLIMUMAB
     Route: 065
  428. CERTOLIZUMAB PEGOL [Suspect]
     Active Substance: CERTOLIZUMAB PEGOL
     Indication: Product used for unknown indication
     Route: 065
  429. COSENTYX [Concomitant]
     Active Substance: SECUKINUMAB
     Indication: Product used for unknown indication
  430. CORTISONE ACETATE [Suspect]
     Active Substance: CORTISONE ACETATE
     Route: 061
  431. CORTISONE ACETATE [Suspect]
     Active Substance: CORTISONE ACETATE
     Route: 048
  432. CORTISONE ACETATE [Suspect]
     Active Substance: CORTISONE ACETATE
     Route: 048
  433. CORTISONE ACETATE [Suspect]
     Active Substance: CORTISONE ACETATE
     Route: 048
  434. CORTISONE ACETATE [Suspect]
     Active Substance: CORTISONE ACETATE
     Route: 048
  435. CORTISONE ACETATE [Suspect]
     Active Substance: CORTISONE ACETATE
     Route: 065
  436. CETIRIZINE HYDROCHLORIDE [Suspect]
     Active Substance: CETIRIZINE HYDROCHLORIDE
     Route: 048
  437. CETIRIZINE HYDROCHLORIDE [Suspect]
     Active Substance: CETIRIZINE HYDROCHLORIDE
     Route: 048
  438. CETIRIZINE HYDROCHLORIDE [Suspect]
     Active Substance: CETIRIZINE HYDROCHLORIDE
     Route: 048
  439. CETIRIZINE HYDROCHLORIDE [Suspect]
     Active Substance: CETIRIZINE HYDROCHLORIDE
     Route: 065
  440. CETIRIZINE HYDROCHLORIDE [Suspect]
     Active Substance: CETIRIZINE HYDROCHLORIDE
     Route: 065
  441. PREDNISONE [Suspect]
     Active Substance: PREDNISONE
     Indication: Rheumatoid arthritis
     Route: 048

REACTIONS (12)
  - Therapy non-responder [Fatal]
  - Weight increased [Fatal]
  - Treatment failure [Fatal]
  - Wheezing [Fatal]
  - Drug ineffective [Fatal]
  - Wound [Fatal]
  - Sleep disorder due to general medical condition, insomnia type [Fatal]
  - Off label use [Fatal]
  - Product use in unapproved indication [Fatal]
  - Medication error [Fatal]
  - Urticaria [Fatal]
  - Vomiting [Fatal]
